FAERS Safety Report 20363871 (Version 1)
Quarter: 2022Q1

REPORT INFORMATION
  Report Type: Spontaneous
  Country: US (occurrence: US)
  Receive Date: 20220121
  Receipt Date: 20220121
  Transmission Date: 20220423
  Serious: No
  Sender: FDA-Public Use
  Company Number: US-SA-SAC20220118000701

PATIENT
  Age: 61 Year
  Sex: Male

DRUGS (9)
  1. DUPIXENT [Suspect]
     Active Substance: DUPILUMAB
     Indication: Dermatitis atopic
     Dosage: 600 MG, 1X
     Route: 058
     Dates: start: 20220110, end: 20220110
  2. DUPIXENT [Suspect]
     Active Substance: DUPILUMAB
     Dosage: 300 MG, QOW
     Route: 058
     Dates: start: 202201
  3. CLONAZEPAM [Concomitant]
     Active Substance: CLONAZEPAM
  4. BETAMETHASONE [Concomitant]
     Active Substance: BETAMETHASONE
  5. MELATONIN [Concomitant]
     Active Substance: MELATONIN
  6. LIPITOR [Concomitant]
     Active Substance: ATORVASTATIN CALCIUM
  7. VITAMIN C [Concomitant]
     Active Substance: ASCORBIC ACID
  8. VITAMIN D3 [Concomitant]
     Active Substance: CHOLECALCIFEROL
  9. COVID-19 VACCINE [Concomitant]
     Indication: Immunisation

REACTIONS (6)
  - Pruritus [Unknown]
  - Erythema [Unknown]
  - Dry skin [Unknown]
  - Skin exfoliation [Unknown]
  - Sleep disorder [Unknown]
  - Extra dose administered [Unknown]

NARRATIVE: CASE EVENT DATE: 20220110
